FAERS Safety Report 17760721 (Version 1)
Quarter: 2020Q2

REPORT INFORMATION
  Report Type: Spontaneous
  Country: GB (occurrence: GB)
  Receive Date: 20200508
  Receipt Date: 20200508
  Transmission Date: 20200714
  Serious: Yes (Other)
  Sender: FDA-Public Use
  Company Number: GB-MYLANLABS-2020M1044941

PATIENT
  Sex: Female

DRUGS (11)
  1. ETOPOSIDE. [Suspect]
     Active Substance: ETOPOSIDE
     Indication: RETINOBLASTOMA
     Dosage: SIX CYCLES
     Route: 065
  2. MELPHALAN. [Suspect]
     Active Substance: MELPHALAN
     Indication: CHEMOTHERAPY
     Dosage: 3 MG
     Route: 065
  3. MELPHALAN. [Suspect]
     Active Substance: MELPHALAN
     Dosage: 7.5 MG
  4. CARBOPLATIN. [Suspect]
     Active Substance: CARBOPLATIN
     Dosage: 30 MILLIGRAM
  5. TOPOTECAN [Suspect]
     Active Substance: TOPOTECAN HYDROCHLORIDE
     Indication: CHEMOTHERAPY
     Dosage: 1.5 MILLIGRAM
     Route: 065
  6. MELPHALAN. [Suspect]
     Active Substance: MELPHALAN
     Dosage: 5 MG
  7. MELPHALAN. [Suspect]
     Active Substance: MELPHALAN
     Dosage: 4 MG
  8. CARBOPLATIN. [Suspect]
     Active Substance: CARBOPLATIN
     Indication: CONGENITAL RETINOBLASTOMA
     Dosage: SIX CYCLES
     Route: 065
  9. TOPOTECAN [Suspect]
     Active Substance: TOPOTECAN HYDROCHLORIDE
     Dosage: 0.3 MILLIGRAM
  10. TOPOTECAN [Suspect]
     Active Substance: TOPOTECAN HYDROCHLORIDE
     Dosage: 1 MILLIGRAM
  11. VINCRISTINE [Suspect]
     Active Substance: VINCRISTINE
     Indication: RETINOBLASTOMA
     Dosage: SIX CYCLES
     Route: 065

REACTIONS (5)
  - Ischaemia [Unknown]
  - Eyelid ptosis [Recovering/Resolving]
  - Rash [Unknown]
  - Disease recurrence [Unknown]
  - Swelling [Unknown]
